FAERS Safety Report 9052525 (Version 1)
Quarter: 2013Q1

REPORT INFORMATION
  Report Type: Spontaneous
  Country: NL (occurrence: NL)
  Receive Date: 20130207
  Receipt Date: 20130207
  Transmission Date: 20140127
  Serious: Yes (Other)
  Sender: FDA-Public Use
  Company Number: PHHY2013NL011347

PATIENT
  Sex: Female

DRUGS (3)
  1. ZOMETA [Suspect]
     Dosage: 4 MG, PER 28 DAYS
     Route: 042
     Dates: start: 20120508
  2. ZOMETA [Suspect]
     Dosage: 4 MG, PER 28 DAYS
     Route: 042
     Dates: start: 20121221
  3. ZOMETA [Suspect]
     Dosage: 4 MG, PER 28 DAYS
     Route: 042
     Dates: start: 20130118

REACTIONS (1)
  - Terminal state [Unknown]
